FAERS Safety Report 20928919 (Version 1)
Quarter: 2022Q2

REPORT INFORMATION
  Report Type: Spontaneous
  Country: US (occurrence: US)
  Receive Date: 20220608
  Receipt Date: 20220608
  Transmission Date: 20220721
  Serious: No
  Sender: FDA-Public Use
  Company Number: US-BRISTOL-MYERS SQUIBB COMPANY-2022-040085

PATIENT
  Age: 66 Year
  Sex: Male
  Weight: 106 kg

DRUGS (1)
  1. REVLIMID [Suspect]
     Active Substance: LENALIDOMIDE
     Indication: Plasma cell myeloma
     Dosage: REVLIMID THERAPY GIVEN FOR 3W, 1W OFF
     Route: 048
     Dates: start: 20220201

REACTIONS (1)
  - Hepatic enzyme increased [Unknown]
